FAERS Safety Report 21931356 (Version 4)
Quarter: 2023Q1

REPORT INFORMATION
  Report Type: Report from Study
  Country: BR (occurrence: BR)
  Receive Date: 20230131
  Receipt Date: 20230324
  Transmission Date: 20230418
  Serious: Yes (Death, Life-Threatening, Hospitalization, Other)
  Sender: FDA-Public Use
  Company Number: BR-JNJFOC-20230137665

PATIENT
  Age: 72 Year
  Sex: Female
  Weight: 70 kg

DRUGS (4)
  1. TECLISTAMAB [Suspect]
     Active Substance: TECLISTAMAB
     Indication: Plasma cell myeloma
     Dosage: DAY 1
     Route: 065
     Dates: start: 20221207
  2. TECLISTAMAB [Suspect]
     Active Substance: TECLISTAMAB
     Dosage: DAY 3
     Route: 065
     Dates: start: 20221209
  3. TECLISTAMAB [Suspect]
     Active Substance: TECLISTAMAB
     Dosage: DAY 7
     Route: 065
     Dates: start: 20221213
  4. TECLISTAMAB [Suspect]
     Active Substance: TECLISTAMAB
     Dosage: WEEK 2
     Route: 065
     Dates: start: 20221223

REACTIONS (5)
  - Death [Fatal]
  - Tumour lysis syndrome [Recovering/Resolving]
  - Myocarditis [Recovering/Resolving]
  - Immune effector cell-associated neurotoxicity syndrome [Unknown]
  - Cytokine release syndrome [Unknown]

NARRATIVE: CASE EVENT DATE: 20221223
